FAERS Safety Report 20122262 (Version 1)
Quarter: 2021Q4

REPORT INFORMATION
  Report Type: Spontaneous
  Country: US (occurrence: US)
  Receive Date: 20211128
  Receipt Date: 20211128
  Transmission Date: 20220303
  Serious: Yes (Other)
  Sender: FDA-Public Use
  Company Number: US-PURDUE-USA-2020-0160497

PATIENT

DRUGS (1)
  1. MORPHINE SULFATE [Suspect]
     Active Substance: MORPHINE SULFATE
     Indication: Headache
     Dosage: UNKNOWN
     Route: 048
     Dates: start: 201306

REACTIONS (7)
  - Drug dependence [Unknown]
  - Hallucination [Unknown]
  - Headache [Unknown]
  - Vomiting [Unknown]
  - Pain [Unknown]
  - Anxiety [Unknown]
  - Drug withdrawal syndrome [Unknown]
